FAERS Safety Report 9170290 (Version 1)
Quarter: 2013Q1

REPORT INFORMATION
  Report Type: Spontaneous
  Country: GB (occurrence: GB)
  Receive Date: 20130319
  Receipt Date: 20130319
  Transmission Date: 20140127
  Serious: Yes (Other)
  Sender: FDA-Public Use
  Company Number: GB-ELI_LILLY_AND_COMPANY-GB201303001344

PATIENT
  Age: 24 Year
  Sex: Female

DRUGS (2)
  1. OLANZAPINE [Suspect]
     Indication: DEPRESSION
     Dosage: 5 MG, UNKNOWN
     Route: 002
     Dates: start: 20130205, end: 20130214
  2. VENLAFAXINE HYDROCHLORIDE [Concomitant]

REACTIONS (2)
  - Leukopenia [Recovering/Resolving]
  - Off label use [Unknown]
